FAERS Safety Report 11018445 (Version 2)
Quarter: 2015Q2

REPORT INFORMATION
  Report Type: Spontaneous
  Country: US (occurrence: US)
  Receive Date: 20150412
  Receipt Date: 20150524
  Transmission Date: 20150821
  Serious: No
  Sender: FDA-Public Use
  Company Number: US-JNJFOC-20141006093

PATIENT

DRUGS (4)
  1. 5 FLUOROURACIL [Suspect]
     Active Substance: FLUOROURACIL
     Indication: METASTATIC NEOPLASM
     Route: 033
  2. DOXORUBICIN [Suspect]
     Active Substance: DOXORUBICIN
     Indication: METASTATIC NEOPLASM
     Route: 033
  3. MITOMYCIN C [Suspect]
     Active Substance: MITOMYCIN
     Indication: METASTATIC NEOPLASM
     Route: 033
  4. LEUCOVORIN [Suspect]
     Active Substance: LEUCOVORIN
     Indication: METASTATIC NEOPLASM
     Route: 033

REACTIONS (2)
  - Product use issue [Unknown]
  - Incorrect route of drug administration [Unknown]
